FAERS Safety Report 7399657-5 (Version None)
Quarter: 2011Q2

REPORT INFORMATION
  Report Type: 
  Country: None (occurrence: None)
  Receive Date: 20110407
  Receipt Date: 20100524
  Transmission Date: 20111010
  Serious: No
  Sender: FDA-Public Use
  Company Number: US-KINGPHARMUSA00001-K201000640

PATIENT
  Age: 69 Year
  Sex: Male
  Weight: 92.971 kg

DRUGS (5)
  1. SKELAXIN [Suspect]
     Indication: MUSCLE SPASMS
     Dosage: 1600 MG, QD
     Route: 048
     Dates: start: 20100401, end: 20100523
  2. MECLIZINE [Suspect]
     Indication: DIZZINESS
  3. DOXEPIN [Suspect]
     Indication: SLEEP DISORDER
     Dosage: 50 MG, QD
     Route: 048
  4. MECLIZINE [Suspect]
     Indication: VERTIGO POSITIONAL
     Dosage: UNK
     Route: 048
     Dates: end: 20100501
  5. ACCUPRIL [Concomitant]
     Indication: HYPERTENSION
     Dosage: 30 MG, QD
     Route: 048

REACTIONS (1)
  - DIZZINESS [None]
